FAERS Safety Report 12645922 (Version 2)
Quarter: 2016Q3

REPORT INFORMATION
  Report Type: Spontaneous
  Country: US (occurrence: US)
  Receive Date: 20160811
  Receipt Date: 20160815
  Transmission Date: 20161109
  Serious: No
  Sender: FDA-Public Use
  Company Number: US-PFIZER INC-2015424970

PATIENT
  Sex: Female

DRUGS (6)
  1. ARALEN [Suspect]
     Active Substance: CHLOROQUINE PHOSPHATE
     Dosage: UNK
  2. QUININE [Suspect]
     Active Substance: QUININE
     Dosage: UNK
  3. VALISONE [Suspect]
     Active Substance: BETAMETHASONE VALERATE
     Dosage: UNK
  4. ASPIRIN. [Suspect]
     Active Substance: ASPIRIN
     Dosage: UNK
  5. ERYTHROMYCIN. [Suspect]
     Active Substance: ERYTHROMYCIN
     Dosage: UNK
  6. CODEINE [Suspect]
     Active Substance: CODEINE
     Dosage: UNK

REACTIONS (1)
  - Drug hypersensitivity [Unknown]
